FAERS Safety Report 10431020 (Version 2)
Quarter: 2014Q3

REPORT INFORMATION
  Report Type: Spontaneous
  Country: US (occurrence: US)
  Receive Date: 20140904
  Receipt Date: 20140922
  Transmission Date: 20150326
  Serious: No
  Sender: FDA-Public Use
  Company Number: US-PFIZER INC-2014245676

PATIENT
  Age: 85 Year
  Sex: Male
  Weight: 47.62 kg

DRUGS (2)
  1. SINEMET [Concomitant]
     Active Substance: CARBIDOPA\LEVODOPA
     Indication: PARKINSON^S DISEASE
     Dosage: CARBIDOPA 25 MG/LEVODOPA 100 MG
  2. ADVIL [Suspect]
     Active Substance: IBUPROFEN
     Indication: PAIN
     Dosage: 200 MG, TWO TIMES A DAY
     Route: 048

REACTIONS (3)
  - Oropharyngeal pain [Unknown]
  - Foreign body [Unknown]
  - Burning sensation [Unknown]

NARRATIVE: CASE EVENT DATE: 201408
